FAERS Safety Report 16089302 (Version 1)
Quarter: 2019Q2

REPORT INFORMATION
  Report Type: Spontaneous
  Country: US (occurrence: US)
  Receive Date: 20190319
  Receipt Date: 20190319
  Transmission Date: 20190711
  Serious: Yes (Hospitalization)
  Sender: FDA-Public Use
  Company Number: None

PATIENT
  Age: 58 Year
  Sex: Female
  Weight: 78.9 kg

DRUGS (13)
  1. ALLOPURINOL. [Concomitant]
     Active Substance: ALLOPURINOL
     Dates: start: 20180926, end: 20181001
  2. DOCUSATE [Concomitant]
     Active Substance: DOCUSATE
     Dates: start: 20180925, end: 20181013
  3. CARBOXYMETHYLCELLULOS [Concomitant]
     Dates: start: 20181001, end: 20181013
  4. HYDROCORTISONE PRN [Concomitant]
     Dates: start: 20180926, end: 20180926
  5. OXYCODONE PRN [Concomitant]
  6. YESCARTA [Suspect]
     Active Substance: AXICABTAGENE CILOLEUCEL
     Indication: DIFFUSE LARGE B-CELL LYMPHOMA
     Dosage: ?          OTHER FREQUENCY:ONCE;?
     Route: 041
     Dates: start: 20180926
  7. ONDANSETRON PRN [Concomitant]
     Dates: start: 20180925, end: 20180927
  8. PANTOPRAZOLE [Concomitant]
     Active Substance: PANTOPRAZOLE
     Dates: start: 20180925
  9. MEROPENEM IV [Concomitant]
  10. ALPRAZOLAM PRN [Concomitant]
     Dates: start: 20180925
  11. VANCOMYCIN [Concomitant]
     Active Substance: VANCOMYCIN
     Dates: start: 20180929, end: 20181001
  12. PHYTONADIONE. [Concomitant]
     Active Substance: PHYTONADIONE
     Dates: start: 20180925, end: 20181009
  13. GANISETRON [Concomitant]
     Dates: start: 20180927, end: 20181013

REACTIONS (1)
  - Cytokine release syndrome [None]

NARRATIVE: CASE EVENT DATE: 20180928
